FAERS Safety Report 20692539 (Version 2)
Quarter: 2022Q2

REPORT INFORMATION
  Report Type: Spontaneous
  Country: US (occurrence: US)
  Receive Date: 20220409
  Receipt Date: 20220511
  Transmission Date: 20220720
  Serious: Yes (Other)
  Sender: FDA-Public Use
  Company Number: US-009507513-1903USA012117

PATIENT
  Sex: Male

DRUGS (9)
  1. ZOSTAVAX [Suspect]
     Active Substance: VARICELLA-ZOSTER VIRUS STRAIN OKA/MERCK LIVE ANTIGEN
     Indication: Prophylaxis
     Dosage: .65 MILLILITER
     Route: 058
     Dates: start: 20160926
  2. STERILE DILUENT (WATER) [Suspect]
     Active Substance: WATER
     Dosage: 0.7 ML
     Route: 058
     Dates: start: 20160926, end: 20160926
  3. ALPRAZOLAM [Concomitant]
     Active Substance: ALPRAZOLAM
     Indication: Insomnia
     Dosage: 0.5 MG, ONCE A DAY
     Dates: start: 2007
  4. PROVENTIL [Concomitant]
     Active Substance: ALBUTEROL
     Indication: Dyspnoea
     Dosage: 90 MCG (2PUFFS), EVERY 4-6 HRS
     Dates: start: 2013
  5. ATENOLOL [Concomitant]
     Active Substance: ATENOLOL
     Indication: Hypertension
     Dosage: 50 MG (1,5 TAB), ONCE A DAY
     Dates: start: 1989
  6. VALSARTAN [Concomitant]
     Active Substance: VALSARTAN
     Indication: Hypertension
     Dosage: 320 MG, ONCE A DAY
     Dates: start: 2009, end: 2020
  7. HYDROCHLOROTHIAZIDE [Concomitant]
     Active Substance: HYDROCHLOROTHIAZIDE
     Indication: Hypertension
     Dosage: 25 MG, ONCE A DAY
     Dates: start: 2004, end: 2020
  8. OMEPRAZOLE [Concomitant]
     Active Substance: OMEPRAZOLE
     Indication: Gastrooesophageal reflux disease
     Dosage: 40 MG, TWICE A DAY
     Dates: start: 2002
  9. CELEBREX [Concomitant]
     Active Substance: CELECOXIB
     Indication: Pain
     Dosage: 200 MG, AS NEEDED
     Dates: start: 2004

REACTIONS (6)
  - Cataract [Unknown]
  - Arthropod bite [Unknown]
  - Gastrointestinal disorder [Unknown]
  - Benign prostatic hyperplasia [Unknown]
  - Tympanic membrane perforation [Unknown]
  - Herpes zoster [Unknown]

NARRATIVE: CASE EVENT DATE: 20170101
